FAERS Safety Report 5452341-7 (Version None)
Quarter: 2007Q3

REPORT INFORMATION
  Report Type: 
  Country: None (occurrence: None)
  Receive Date: 20070914
  Receipt Date: 20070823
  Transmission Date: 20080115
  Serious: No
  Sender: FDA-Public Use
  Company Number: US-JNJFOC-20070805483

PATIENT
  Age: 41 Year
  Sex: Female
  Weight: 58.97 kg

DRUGS (6)
  1. INVEGA [Suspect]
     Route: 048
  2. INVEGA [Suspect]
     Route: 048
  3. INVEGA [Suspect]
     Indication: BIPOLAR DISORDER
     Route: 048
  4. TOPAMAX [Concomitant]
     Indication: BIPOLAR DISORDER
  5. PROZAC [Concomitant]
     Indication: DEPRESSION
     Route: 048
  6. KLONOPIN [Concomitant]
     Indication: CONVULSION
     Route: 048

REACTIONS (2)
  - DIZZINESS [None]
  - FEELING ABNORMAL [None]
